FAERS Safety Report 9836537 (Version 2)
Quarter: 2014Q1

REPORT INFORMATION
  Report Type: Spontaneous
  Country: DE (occurrence: DE)
  Receive Date: 20140123
  Receipt Date: 20140221
  Transmission Date: 20141002
  Serious: Yes (Hospitalization, Other)
  Sender: FDA-Public Use
  Company Number: DE-RANBAXY-2014RR-77362

PATIENT
  Age: 57 Year
  Sex: Female
  Weight: 82 kg

DRUGS (1)
  1. CIPRO BASICS 500MG FILMTABLETTEN [Suspect]
     Indication: LOCALISED INFECTION
     Dosage: 500 MG, BID, 4 TABLETS
     Route: 065
     Dates: start: 20131210, end: 20131211

REACTIONS (8)
  - Myalgia [Unknown]
  - Tendon pain [Unknown]
  - Muscle tightness [Unknown]
  - Hypoaesthesia [Recovering/Resolving]
  - Hypoaesthesia eye [Recovering/Resolving]
  - Hypoaesthesia [Recovering/Resolving]
  - Hypoaesthesia [Recovering/Resolving]
  - Drug ineffective [Unknown]
